FAERS Safety Report 8584812-9 (Version None)
Quarter: 2012Q3

REPORT INFORMATION
  Report Type: 
  Country: None (occurrence: None)
  Receive Date: 20120810
  Receipt Date: 20120731
  Transmission Date: 20120928
  Serious: Yes (Hospitalization)
  Sender: FDA-Public Use
  Company Number: FR-JNJFOC-20120801804

PATIENT
  Age: 27 Year
  Sex: Female

DRUGS (4)
  1. REMICADE [Suspect]
     Indication: COELIAC DISEASE
     Route: 042
     Dates: start: 20110307, end: 20111104
  2. REMICADE [Suspect]
     Route: 042
     Dates: start: 20111104, end: 20111104
  3. REMICADE [Suspect]
     Indication: CROHN'S DISEASE
     Route: 042
     Dates: start: 20110307, end: 20111104
  4. REMICADE [Suspect]
     Route: 042
     Dates: start: 20111104, end: 20111104

REACTIONS (3)
  - CHOLANGITIS [None]
  - PERTUSSIS [None]
  - LUNG DISORDER [None]
